FAERS Safety Report 7039047-8 (Version None)
Quarter: 2010Q4

REPORT INFORMATION
  Report Type: 
  Country: None (occurrence: None)
  Receive Date: 20101012
  Receipt Date: 20100930
  Transmission Date: 20110411
  Serious: Yes (Hospitalization)
  Sender: FDA-Public Use
  Company Number: IT-ELI_LILLY_AND_COMPANY-IT201007007007

PATIENT
  Sex: Female

DRUGS (8)
  1. GEMZAR [Suspect]
     Indication: PANCREATIC CARCINOMA
     Dosage: 1000 MG, PER CYCLE
     Route: 042
     Dates: start: 20100616, end: 20100714
  2. FERLIXIT [Concomitant]
     Dosage: UNK, UNKNOWN
     Route: 065
  3. PERINDOPRIL ERBUMINE [Concomitant]
     Indication: HYPERTENSION
     Dosage: 10 MG, DAILY (1/D)
     Route: 048
  4. LANSOX [Concomitant]
     Dosage: 30 MG, DAILY (1/D)
     Route: 048
  5. CLEXANE [Concomitant]
     Indication: PROPHYLAXIS
     Dosage: 4000 IU, DAILY (1/D)
     Route: 058
  6. LAEVOLAC [Concomitant]
     Dosage: 66.7 G/100ML, UNKNOWN
     Route: 048
  7. MS CONTIN [Concomitant]
     Indication: ABDOMINAL PAIN UPPER
     Dosage: 10 MG, 2/D
     Route: 048
  8. ARANESP [Concomitant]
     Indication: ANAEMIA
     Dosage: 150 UG, DAILY (1/D)
     Route: 058

REACTIONS (7)
  - BLOOD PRESSURE DIASTOLIC INCREASED [None]
  - DIZZINESS [None]
  - HYPOVOLAEMIA [None]
  - ISCHAEMIA [None]
  - METABOLIC ACIDOSIS [None]
  - RETCHING [None]
  - SWEAT GLAND DISORDER [None]
